FAERS Safety Report 21534616 (Version 2)
Quarter: 2022Q4

REPORT INFORMATION
  Report Type: Spontaneous
  Country: CN (occurrence: CN)
  Receive Date: 20221101
  Receipt Date: 20221115
  Transmission Date: 20230112
  Serious: Yes (Hospitalization, Other)
  Sender: FDA-Public Use
  Company Number: CN-GLAXOSMITHKLINE-CN2022APC153349

PATIENT

DRUGS (1)
  1. ANORO ELLIPTA [Suspect]
     Active Substance: UMECLIDINIUM BROMIDE\VILANTEROL TRIFENATATE
     Indication: Chronic obstructive pulmonary disease
     Dosage: 1 PUFF(S), QD, 30 INHALATIONS
     Route: 055
     Dates: start: 202103, end: 20221006

REACTIONS (7)
  - Pulmonary mass [Recovered/Resolved]
  - Cryptococcosis [Unknown]
  - Pneumonitis [Recovered/Resolved]
  - Cough [Unknown]
  - Productive cough [Recovered/Resolved]
  - Therapy cessation [Unknown]
  - Intentional product misuse [Unknown]

NARRATIVE: CASE EVENT DATE: 20180101
